FAERS Safety Report 8792432 (Version 3)
Quarter: 2012Q4

REPORT INFORMATION
  Report Type: 
  Country: CO (occurrence: CO)
  Receive Date: 20120918
  Receipt Date: 20121102
  Transmission Date: 20130627
  Serious: Yes (Death)
  Sender: FDA-Public Use
  Company Number: CO-PFIZER INC-2012228302

PATIENT
  Age: 96 Year
  Sex: Female

DRUGS (2)
  1. AROMASIN [Suspect]
     Indication: BREAST CANCER
     Dosage: UNK
     Route: 065
     Dates: start: 20090126
  2. SUTENT [Suspect]
     Indication: BREAST CANCER

REACTIONS (2)
  - Disease progression [Fatal]
  - Breast cancer [Fatal]
